FAERS Safety Report 10725553 (Version 1)
Quarter: 2015Q1

REPORT INFORMATION
  Report Type: Spontaneous
  Country: BR (occurrence: BR)
  Receive Date: 20150121
  Receipt Date: 20150121
  Transmission Date: 20150721
  Serious: Yes (Hospitalization)
  Sender: FDA-Public Use
  Company Number: BR-ASTRAZENECA-2015SE04171

PATIENT
  Age: 792 Month
  Sex: Male
  Weight: 80 kg

DRUGS (10)
  1. PROCORALAN [Concomitant]
     Active Substance: IVABRADINE
     Route: 048
  2. ASPIRINA PREVENT [Concomitant]
     Active Substance: ASPIRIN
     Dosage: DAILY
     Route: 048
  3. NEXIUM [Suspect]
     Active Substance: ESOMEPRAZOLE MAGNESIUM
     Indication: PROPHYLAXIS
     Route: 048
     Dates: start: 2007, end: 201411
  4. ALDACTONE [Concomitant]
     Active Substance: SPIRONOLACTONE
     Route: 048
  5. ROSUVASTATIN [Suspect]
     Active Substance: ROSUVASTATIN
     Indication: CARDIAC DISORDER
     Dosage: DAILY
     Route: 048
  6. GALVUS  MET [Suspect]
     Active Substance: METFORMIN HYDROCHLORIDE\VILDAGLIPTIN
     Indication: DIABETES PROPHYLAXIS
     Dosage: 850MG/50MG; TWO TIMES A DAY
     Route: 048
  7. CARVEDILOL. [Concomitant]
     Active Substance: CARVEDILOL
     Route: 048
  8. NEXIUM [Suspect]
     Active Substance: ESOMEPRAZOLE MAGNESIUM
     Indication: PROPHYLAXIS
     Route: 048
     Dates: start: 201411
  9. ALLOPURINOL. [Concomitant]
     Active Substance: ALLOPURINOL
     Indication: BLOOD URIC ACID INCREASED
     Route: 048
     Dates: start: 201410
  10. BAMIFIX [Concomitant]
     Active Substance: BAMIFYLLINE HYDROCHLORIDE
     Route: 048
     Dates: start: 2007

REACTIONS (4)
  - Abdominal pain upper [Not Recovered/Not Resolved]
  - Acute myocardial infarction [Recovered/Resolved]
  - Blood uric acid increased [Not Recovered/Not Resolved]
  - Blood glucose fluctuation [Not Recovered/Not Resolved]

NARRATIVE: CASE EVENT DATE: 201410
